FAERS Safety Report 18038457 (Version 2)
Quarter: 2020Q3

REPORT INFORMATION
  Report Type: Spontaneous
  Country: GB (occurrence: GB)
  Receive Date: 20200717
  Receipt Date: 20200804
  Transmission Date: 20201103
  Serious: Yes (Hospitalization, Other)
  Sender: FDA-Public Use
  Company Number: GB-VERTEX PHARMACEUTICALS-2020-014720

PATIENT
  Age: 52 Year
  Sex: Female

DRUGS (6)
  1. SYMKEVI [Suspect]
     Active Substance: IVACAFTOR\TEZACAFTOR
     Dosage: 100 MG TEZACAFTOR/ 150 MG IVACAFTOR, FULL DOSE
     Route: 048
     Dates: start: 20200522
  2. KALYDECO [Suspect]
     Active Substance: IVACAFTOR
     Indication: CYSTIC FIBROSIS
     Dosage: REDUCED DOSE
     Route: 048
     Dates: start: 201912, end: 2020
  3. KALYDECO [Suspect]
     Active Substance: IVACAFTOR
     Dosage: 100 MG TEZACAFTOR/ 150 MG IVACAFTOR, FULL DOSE
     Route: 048
     Dates: start: 20200522
  4. SYMKEVI [Suspect]
     Active Substance: IVACAFTOR\TEZACAFTOR
     Indication: CYSTIC FIBROSIS
     Dosage: REDUCED DOSE
     Route: 048
     Dates: start: 201912, end: 2020
  5. DILTIAZEM. [Concomitant]
     Active Substance: DILTIAZEM
     Route: 065
  6. APIXABAN [Concomitant]
     Active Substance: APIXABAN
     Dosage: UNK, QD

REACTIONS (2)
  - Cystic fibrosis [Not Recovered/Not Resolved]
  - Infective pulmonary exacerbation of cystic fibrosis [Unknown]

NARRATIVE: CASE EVENT DATE: 2020
